FAERS Safety Report 23528768 (Version 1)
Quarter: 2024Q1

REPORT INFORMATION
  Report Type: Spontaneous
  Country: TR (occurrence: TR)
  Receive Date: 20240215
  Receipt Date: 20240215
  Transmission Date: 20240410
  Serious: Yes (Death, Other)
  Sender: FDA-Public Use
  Company Number: TR-AMGEN-TURSP2024027295

PATIENT

DRUGS (1)
  1. ADALIMUMAB [Suspect]
     Active Substance: ADALIMUMAB\ISOPROPYL ALCOHOL
     Indication: Rheumatoid arthritis
     Dosage: UNK
     Route: 065

REACTIONS (9)
  - Death [Fatal]
  - Chronic kidney disease [Unknown]
  - Tuberculosis [Unknown]
  - Interstitial lung disease [Unknown]
  - Systemic infection [Unknown]
  - Hypersensitivity [Unknown]
  - Pulmonary mass [Unknown]
  - Pleural effusion [Unknown]
  - Drug ineffective [Unknown]
